FAERS Safety Report 7276138-0 (Version None)
Quarter: 2011Q1

REPORT INFORMATION
  Report Type: 
  Country: None (occurrence: None)
  Receive Date: 20110204
  Receipt Date: 20110124
  Transmission Date: 20110831
  Serious: Yes (Other)
  Sender: FDA-Public Use
  Company Number: PHHY2010CA73937

PATIENT
  Age: 54 Year
  Sex: Female

DRUGS (9)
  1. ETOPOSIDE [Concomitant]
  2. GLEEVEC [Suspect]
     Indication: ASTHENIA
  3. AMSACRINE [Concomitant]
  4. GLEEVEC [Suspect]
     Indication: PANCYTOPENIA
     Dosage: 400 MG, UNK
     Route: 048
     Dates: start: 20100101, end: 20100915
  5. MITOXANTRONE [Concomitant]
  6. DDAVP [Concomitant]
  7. CYTARABINE [Concomitant]
  8. PAXIL [Concomitant]
  9. ATIVAN [Concomitant]

REACTIONS (7)
  - LETHARGY [None]
  - ASTHENIA [None]
  - FATIGUE [None]
  - VOMITING [None]
  - WEIGHT DECREASED [None]
  - HYPOPHAGIA [None]
  - NAUSEA [None]
